FAERS Safety Report 13390004 (Version 1)
Quarter: 2017Q1

REPORT INFORMATION
  Report Type: Spontaneous
  Country: BR (occurrence: BR)
  Receive Date: 20170331
  Receipt Date: 20170331
  Transmission Date: 20170429
  Serious: Yes (Other)
  Sender: FDA-Public Use
  Company Number: BR-TORRENT-00003930

PATIENT
  Age: 60 Year
  Sex: Female
  Weight: 62 kg

DRUGS (7)
  1. GLICLAZIDE [Suspect]
     Active Substance: GLICLAZIDE
  2. ROSUVASTATIN CALCIUM. [Suspect]
     Active Substance: ROSUVASTATIN CALCIUM
  3. CALCIUM VITAMIN D3 [Concomitant]
  4. METFORMIN [Suspect]
     Active Substance: METFORMIN HYDROCHLORIDE
  5. ARADOIS [Concomitant]
     Active Substance: LOSARTAN POTASSIUM
  6. INDAPAMIDE. [Concomitant]
     Active Substance: INDAPAMIDE
  7. SIMVASTATIN. [Suspect]
     Active Substance: SIMVASTATIN

REACTIONS (4)
  - Muscle fatigue [Recovered/Resolved]
  - Myalgia [Unknown]
  - Diarrhoea [Unknown]
  - Diabetes mellitus [Not Recovered/Not Resolved]

NARRATIVE: CASE EVENT DATE: 201701
